FAERS Safety Report 10799039 (Version 2)
Quarter: 2015Q1

REPORT INFORMATION
  Report Type: Spontaneous
  Country: US (occurrence: US)
  Receive Date: 20150216
  Receipt Date: 20150216
  Transmission Date: 20150721
  Serious: No
  Sender: FDA-Public Use
  Company Number: US-ALLERGAN-1404542US

PATIENT
  Sex: Female
  Weight: 180 kg

DRUGS (3)
  1. RESTASIS [Suspect]
     Active Substance: CYCLOSPORINE
     Indication: DRY EYE
     Dosage: 1 DROP TO EACH EYE TWO TIMES A DAY
     Route: 047
  2. PINE TAR SOAP [Concomitant]
     Indication: PRODUCT USED FOR UNKNOWN INDICATION
  3. TEARS NATURALE FREE [Suspect]
     Active Substance: DEXTRAN 70\HYPROMELLOSE 2910 (4000 MPA.S)
     Indication: DRY EYE
     Dosage: 1 DROP BOTH EYES AS NEEDED
     Route: 047
     Dates: start: 201401, end: 20140215

REACTIONS (4)
  - Hypersensitivity [Not Recovered/Not Resolved]
  - Rash macular [Not Recovered/Not Resolved]
  - Skin fissures [Not Recovered/Not Resolved]
  - Eye swelling [Recovering/Resolving]
